FAERS Safety Report 5798713-2 (Version None)
Quarter: 2008Q2

REPORT INFORMATION
  Report Type: 
  Country: None (occurrence: None)
  Receive Date: 20080630
  Receipt Date: 20080614
  Transmission Date: 20081010
  Serious: Yes (Other)
  Sender: FDA-Public Use
  Company Number: S08-GER-02195-01

PATIENT
  Age: 49 Year
  Sex: Female
  Weight: 75 kg

DRUGS (3)
  1. ESCITALOPRAM OXALATE [Suspect]
     Dosage: 800 MG ONCE PO
     Route: 048
     Dates: start: 20080614, end: 20080614
  2. ESCITALOPRAM OXALATE [Suspect]
  3. TRAMADOL HCL [Suspect]
     Dosage: 10000 MG ONCE PO
     Route: 048
     Dates: start: 20080614, end: 20080614

REACTIONS (4)
  - INTENTIONAL OVERDOSE [None]
  - RESPIRATORY DEPRESSION [None]
  - SOMNOLENCE [None]
  - SUICIDE ATTEMPT [None]
